FAERS Safety Report 25930159 (Version 1)
Quarter: 2025Q4

REPORT INFORMATION
  Report Type: Spontaneous
  Country: JP (occurrence: JP)
  Receive Date: 20251016
  Receipt Date: 20251016
  Transmission Date: 20260118
  Serious: Yes (Death)
  Sender: TAIHO ONCOLOGY INC
  Company Number: JP-TAIHOP-2025-010349

PATIENT
  Age: 7 Decade
  Sex: Male

DRUGS (1)
  1. LONSURF [Suspect]
     Active Substance: TIPIRACIL HYDROCHLORIDE\TRIFLURIDINE
     Indication: Gastric cancer
     Dosage: DOSE, FORM STRENGTH AND FREQUENCY WERE UNKNOWN. CYCLE 1
     Route: 048
     Dates: start: 202509

REACTIONS (1)
  - Disease progression [Fatal]
